FAERS Safety Report 4435034-4 (Version None)
Quarter: 2004Q3

REPORT INFORMATION
  Report Type: 
  Country: None (occurrence: None)
  Receive Date: 20040827
  Receipt Date: 20040810
  Transmission Date: 20050211
  Serious: Yes (Hospitalization)
  Sender: FDA-Public Use
  Company Number: US-AMGEN-KDL087002

PATIENT
  Sex: Female

DRUGS (1)
  1. ENBREL [Suspect]
     Indication: RHEUMATOID ARTHRITIS
     Route: 058
     Dates: start: 20001101

REACTIONS (5)
  - FATIGUE [None]
  - INJECTION SITE HAEMORRHAGE [None]
  - INTERVERTEBRAL DISC PROTRUSION [None]
  - RED BLOOD CELL SEDIMENTATION RATE INCREASED [None]
  - SCIATICA [None]
